FAERS Safety Report 11404298 (Version 2)
Quarter: 2015Q4

REPORT INFORMATION
  Report Type: Spontaneous
  Country: US (occurrence: US)
  Receive Date: 20150821
  Receipt Date: 20151009
  Transmission Date: 20160304
  Serious: Yes (Hospitalization, Other)
  Sender: FDA-Public Use
  Company Number: US-ELI_LILLY_AND_COMPANY-US201508004675

PATIENT
  Age: 62 Year
  Sex: Male
  Weight: 133 kg

DRUGS (37)
  1. AXIRON [Suspect]
     Active Substance: TESTOSTERONE
     Indication: LIBIDO DECREASED
     Dosage: 60 MG, QD
     Route: 061
     Dates: start: 20131113, end: 201402
  2. GABAPENTIN. [Concomitant]
     Active Substance: GABAPENTIN
     Indication: TREMOR
  3. HUMIRA [Concomitant]
     Active Substance: ADALIMUMAB
     Indication: PSORIATIC ARTHROPATHY
  4. B COMPLEX WITH C [Concomitant]
     Dosage: 1 DF, EACH MORNING
     Route: 065
  5. GARLIC                             /01570501/ [Concomitant]
     Dosage: 1000 MG, EACH MORNING
     Route: 065
  6. GLUCOSAMINE + CHONDROITIN          /01430901/ [Concomitant]
     Dosage: 1 DF, EACH MORNING
  7. AXIRON [Suspect]
     Active Substance: TESTOSTERONE
     Indication: ANDROGEN REPLACEMENT THERAPY
     Dosage: 60 MG, QD
     Route: 061
     Dates: start: 2009
  8. FOLIC ACID. [Concomitant]
     Active Substance: FOLIC ACID
     Indication: ARTHRITIS
     Dosage: 1 MG, EACH MORNING
     Route: 065
  9. WARFARIN [Concomitant]
     Active Substance: WARFARIN
     Indication: THROMBOSIS
     Dosage: UNK UNK, UNKNOWN
     Route: 065
     Dates: end: 201302
  10. GABAPENTIN. [Concomitant]
     Active Substance: GABAPENTIN
     Indication: NEUROPATHY PERIPHERAL
     Dosage: UNK UNK, UNKNOWN
     Route: 065
     Dates: end: 201311
  11. HUMIRA [Concomitant]
     Active Substance: ADALIMUMAB
     Indication: PSORIASIS
     Dosage: 40 MG, EVERY 2 WEEKS
     Route: 065
  12. HUMIRA [Concomitant]
     Active Substance: ADALIMUMAB
     Indication: RHEUMATOID ARTHRITIS
  13. FISH OIL [Concomitant]
     Active Substance: FISH OIL
     Dosage: 1400 MG, EACH MORNING
     Route: 065
  14. GLUCOSAMINE + CHONDROITIN          /01430901/ [Concomitant]
     Dosage: 1 DF, EACH EVENING
  15. NORVASC [Concomitant]
     Active Substance: AMLODIPINE BESYLATE
     Indication: HYPERTENSION
     Dosage: 10 MG, EACH MORNING
     Route: 065
  16. FOLIC ACID. [Concomitant]
     Active Substance: FOLIC ACID
     Dosage: 1 MG, EACH EVENING
     Route: 065
     Dates: start: 201111
  17. FEBUXOSTAT. [Concomitant]
     Active Substance: FEBUXOSTAT
     Indication: GOUT
     Dosage: 40 MG, EACH MORNING
     Route: 065
  18. TOPROL XL [Concomitant]
     Active Substance: METOPROLOL SUCCINATE
     Indication: HYPERTENSION
     Dosage: 200 MG, EACH EVENING
     Route: 065
  19. GLUCOPHAGE [Concomitant]
     Active Substance: METFORMIN HYDROCHLORIDE
     Indication: DIABETES MELLITUS
     Dosage: 1500 MG, EACH MORNING
     Route: 065
  20. RHEUMATREX [Concomitant]
     Active Substance: METHOTREXATE SODIUM
     Indication: PSORIATIC ARTHROPATHY
     Dosage: 7.5 MG, WEEKLY (1/W)
     Route: 065
  21. ALLOPURINOL. [Concomitant]
     Active Substance: ALLOPURINOL
     Indication: GOUT
     Dosage: UNK UNK, UNKNOWN
     Route: 065
     Dates: end: 201310
  22. TYLENOL [Concomitant]
     Active Substance: ACETAMINOPHEN
     Dosage: 650 MG, PRN
     Route: 065
  23. AXIRON [Suspect]
     Active Substance: TESTOSTERONE
     Indication: HYPOGONADISM
  24. COZAAR [Concomitant]
     Active Substance: LOSARTAN POTASSIUM
     Indication: HYPERTENSION
     Dosage: 100 MG, EACH MORNING
     Route: 065
  25. GARLIC                             /01570501/ [Concomitant]
     Dosage: 1000 MG, EACH EVENING
     Dates: start: 201402
  26. VITAMIN D3 [Concomitant]
     Active Substance: CHOLECALCIFEROL
     Dosage: 2000 IU, EACH MORNING
     Route: 065
  27. VITAMIN D3 [Concomitant]
     Active Substance: CHOLECALCIFEROL
     Dosage: 2000 MG, EACH EVENING
     Route: 065
  28. FLONASE [Concomitant]
     Active Substance: FLUTICASONE PROPIONATE
     Indication: ALLERGIC SINUSITIS
     Dosage: 2 DF, EACH EVENING
     Route: 045
  29. RHEUMATREX [Concomitant]
     Active Substance: METHOTREXATE SODIUM
     Indication: RHEUMATOID ARTHRITIS
  30. ASPIRIN                            /00002701/ [Concomitant]
     Active Substance: ASPIRIN
     Indication: THROMBOSIS
     Dosage: 325 MG, EACH EVENING
     Route: 065
  31. CATAPRES [Concomitant]
     Active Substance: CLONIDINE HYDROCHLORIDE
     Indication: HYPERTENSION
     Dosage: 0.3 MG, WEEKLY (1/W)
     Route: 065
  32. LISINOPRIL + HIDROCLOROTIAZIDA [Concomitant]
     Active Substance: HYDROCHLOROTHIAZIDE\LISINOPRIL
     Indication: HYPERTENSION
     Dosage: UNK UNK, UNKNOWN
     Route: 065
     Dates: end: 201402
  33. LYRICA [Concomitant]
     Active Substance: PREGABALIN
     Indication: NEUROPATHY PERIPHERAL
     Dosage: 75 MG, EACH MORNING
     Route: 065
  34. LYRICA [Concomitant]
     Active Substance: PREGABALIN
     Dosage: 150 MG, EACH EVENING
     Route: 065
     Dates: start: 201311
  35. VECTICAL [Concomitant]
     Active Substance: CALCITRIOL
     Indication: PSORIASIS
     Dosage: UNK UNK, EACH EVENING
     Route: 065
  36. CLOBEX                             /00012002/ [Concomitant]
     Indication: PSORIASIS
     Dosage: UNK, UNKNOWN
     Route: 065
     Dates: end: 2013
  37. FISH OIL [Concomitant]
     Active Substance: FISH OIL
     Dosage: 1400 MG, EACH EVENING
     Route: 065

REACTIONS (4)
  - Deep vein thrombosis [Unknown]
  - Balance disorder [Not Recovered/Not Resolved]
  - Pulmonary embolism [Unknown]
  - Neuropathy peripheral [Not Recovered/Not Resolved]

NARRATIVE: CASE EVENT DATE: 20120220
